FAERS Safety Report 17505577 (Version 1)
Quarter: 2020Q1

REPORT INFORMATION
  Report Type: Report from Study
  Country: JP (occurrence: JP)
  Receive Date: 20200305
  Receipt Date: 20200305
  Transmission Date: 20200409
  Serious: Yes (Other)
  Sender: FDA-Public Use
  Company Number: JP-SA-2020SA051950

PATIENT
  Age: 61 Year
  Sex: Male
  Weight: 67.5 kg

DRUGS (13)
  1. OXALIPLATIN. [Suspect]
     Active Substance: OXALIPLATIN
     Indication: COLON CANCER
     Route: 065
  2. LEUCOVORIN [CALCIUM FOLINATE] [Concomitant]
     Active Substance: LEUCOVORIN
     Dosage: 200 MG/M2, QOW
     Route: 065
     Dates: start: 20190409, end: 20190423
  3. 5-FU [FLUOROURACIL] [Concomitant]
     Active Substance: FLUOROURACIL
     Dosage: 400 MG/M2, 1X
     Route: 040
     Dates: start: 20190312, end: 20190312
  4. 5-FU [FLUOROURACIL] [Concomitant]
     Active Substance: FLUOROURACIL
     Indication: COLON CANCER
     Dosage: 400 MG/M2, 1X
     Route: 040
     Dates: start: 20190324, end: 20190324
  5. 5-FU [FLUOROURACIL] [Concomitant]
     Active Substance: FLUOROURACIL
     Dosage: 2120 MG/M2, QOW
     Route: 041
     Dates: start: 20190409, end: 20190423
  6. LEUCOVORIN [CALCIUM FOLINATE] [Concomitant]
     Active Substance: LEUCOVORIN
     Dosage: 200 MG/M2, 1X
     Route: 065
     Dates: start: 20190312, end: 20190312
  7. 5-FU [FLUOROURACIL] [Concomitant]
     Active Substance: FLUOROURACIL
     Dosage: 2400 MG/M2, 1X
     Route: 041
     Dates: start: 20190324, end: 20190324
  8. 5-FU [FLUOROURACIL] [Concomitant]
     Active Substance: FLUOROURACIL
     Dosage: 2400 MG/M2, 1X
     Route: 041
     Dates: start: 20190312, end: 20190312
  9. IRINOTECAN HYDROCHLORIDE. [Concomitant]
     Active Substance: IRINOTECAN HYDROCHLORIDE
     Indication: COLON CANCER
     Dosage: 150 MG/M2, 1X
     Route: 065
     Dates: start: 20190324, end: 20190324
  10. IRINOTECAN HYDROCHLORIDE. [Concomitant]
     Active Substance: IRINOTECAN HYDROCHLORIDE
     Dosage: 150 MG/M2, 1X
     Route: 065
     Dates: start: 20190312, end: 20190312
  11. IRINOTECAN HYDROCHLORIDE. [Concomitant]
     Active Substance: IRINOTECAN HYDROCHLORIDE
     Dosage: 120 MG/M2, QOW
     Route: 065
     Dates: start: 20190409, end: 20190423
  12. AFLIBERCEPT [Suspect]
     Active Substance: AFLIBERCEPT
     Indication: COLON CANCER
     Dosage: 4 MG/KG, QOW
     Route: 041
     Dates: start: 20190312, end: 20190423
  13. LEUCOVORIN [CALCIUM FOLINATE] [Concomitant]
     Active Substance: LEUCOVORIN
     Indication: COLON CANCER
     Dosage: 200 MG/M2, 1X
     Route: 065
     Dates: start: 20190324, end: 20190324

REACTIONS (2)
  - Neuropathy peripheral [Not Recovered/Not Resolved]
  - Malaise [Not Recovered/Not Resolved]

NARRATIVE: CASE EVENT DATE: 20190326
